FAERS Safety Report 13856284 (Version 5)
Quarter: 2018Q1

REPORT INFORMATION
  Report Type: Report from Study
  Country: US (occurrence: US)
  Receive Date: 20170810
  Receipt Date: 20180321
  Transmission Date: 20180508
  Serious: Yes (Other)
  Sender: FDA-Public Use
  Company Number: US-ACTELION-A-NJ2017-153037

PATIENT
  Age: 78 Year
  Sex: Female
  Weight: 100.68 kg

DRUGS (3)
  1. UPTRAVI [Suspect]
     Active Substance: SELEXIPAG
     Dosage: 200 MCG, BID
     Route: 048
  2. UPTRAVI [Suspect]
     Active Substance: SELEXIPAG
     Indication: PULMONARY ARTERIAL HYPERTENSION
     Dosage: 800 MCG, BID
     Route: 048
  3. OPSUMIT [Suspect]
     Active Substance: MACITENTAN
     Indication: PULMONARY ARTERIAL HYPERTENSION
     Dosage: 10 MG, QD
     Route: 048
     Dates: start: 20150915

REACTIONS (10)
  - Panic reaction [Unknown]
  - Eye infection [Unknown]
  - Infection [Unknown]
  - Visual impairment [Unknown]
  - Joint stiffness [Unknown]
  - Therapy partial responder [Unknown]
  - Nasopharyngitis [Unknown]
  - Macular degeneration [Unknown]
  - Pain in jaw [Recovered/Resolved]
  - Stress [Unknown]
